FAERS Safety Report 8578233-2 (Version None)
Quarter: 2012Q3

REPORT INFORMATION
  Report Type: 
  Country: None (occurrence: None)
  Receive Date: 20120808
  Receipt Date: 20120803
  Transmission Date: 20120928
  Serious: No
  Sender: FDA-Public Use
  Company Number: US-PFIZER INC-2012130732

PATIENT
  Age: 47 Year
  Sex: Male
  Weight: 94 kg

DRUGS (4)
  1. NORVASC [Suspect]
     Indication: HYPERTENSION
     Dosage: 10 MG, 1X/DAY
     Route: 048
  2. LISINOPRIL [Concomitant]
     Indication: HYPERTENSION
     Dosage: UNK
  3. TOPROL-XL [Concomitant]
     Indication: HYPERTENSION
     Dosage: 50 MG, UNK
  4. NORVASC [Suspect]
     Dosage: UNK
     Route: 048

REACTIONS (3)
  - BLOOD BLISTER [None]
  - URTICARIA [None]
  - HYPERSENSITIVITY [None]
